FAERS Safety Report 7455310-0 (Version None)
Quarter: 2011Q2

REPORT INFORMATION
  Report Type: 
  Country: None (occurrence: None)
  Receive Date: 20110503
  Receipt Date: 20110422
  Transmission Date: 20111010
  Serious: Yes (Other)
  Sender: FDA-Public Use
  Company Number: US-SANOFI-AVENTIS-2011SA016181

PATIENT
  Age: 79 Year
  Sex: Male
  Weight: 82 kg

DRUGS (6)
  1. DILTIAZEM [Concomitant]
     Dosage: DIVIDED DOSES
     Dates: start: 20090801
  2. LOVENOX [Concomitant]
     Dates: start: 20100101
  3. MULTAQ [Suspect]
     Indication: ATRIAL FIBRILLATION
     Route: 048
     Dates: start: 20101020, end: 20110414
  4. LOVENOX [Concomitant]
     Indication: ANTICOAGULANT THERAPY
     Dosage: DIVIDED DOSES
     Dates: start: 20090901, end: 20090901
  5. TOPROL-XL [Concomitant]
     Route: 065
     Dates: start: 20090801, end: 20110101
  6. ZOCOR [Suspect]
     Route: 065

REACTIONS (3)
  - DEMYELINATION [None]
  - TREMOR [None]
  - BLOOD CREATININE INCREASED [None]
